FAERS Safety Report 8906376 (Version 1)
Quarter: 2012Q4

REPORT INFORMATION
  Report Type: Spontaneous
  Country: US (occurrence: None)
  Receive Date: 20121112
  Receipt Date: 20121112
  Transmission Date: 20130627
  Serious: Yes (Other)
  Sender: FDA-Public Use
  Company Number: None

PATIENT
  Age: 68 Year
  Sex: Male
  Weight: 94.35 kg

DRUGS (1)
  1. LUPRON [Suspect]
     Indication: PROSTATE CANCER
     Dosage: 4 mo. injection  1  buttocks
     Dates: start: 201206

REACTIONS (6)
  - Musculoskeletal pain [None]
  - Arthralgia [None]
  - Hot flush [None]
  - Pain in extremity [None]
  - Emotional distress [None]
  - Crying [None]
